FAERS Safety Report 5386866-X (Version None)
Quarter: 2007Q3

REPORT INFORMATION
  Report Type: 
  Country: None (occurrence: None)
  Receive Date: 20070713
  Receipt Date: 20070705
  Transmission Date: 20080115
  Serious: Yes (Hospitalization, Other)
  Sender: FDA-Public Use
  Company Number: JP-PFIZER INC-2007042849

PATIENT
  Sex: Female
  Weight: 46 kg

DRUGS (8)
  1. AZULFIDINE EN-TABS [Suspect]
     Indication: RHEUMATOID ARTHRITIS
     Route: 048
     Dates: start: 20070420, end: 20070504
  2. RIMATIL [Suspect]
     Indication: RHEUMATOID ARTHRITIS
     Route: 048
     Dates: start: 20070420, end: 20070504
  3. ALENDRONATE SODIUM [Concomitant]
     Indication: OSTEOPOROSIS
     Route: 048
  4. GLAKAY [Concomitant]
     Indication: OSTEOPOROSIS
     Route: 048
  5. GASTER [Concomitant]
     Indication: GASTRITIS
     Route: 048
  6. MUCOSTA [Concomitant]
     Indication: GASTRITIS
     Route: 048
  7. THYRADIN [Concomitant]
     Indication: HYPOTHYROIDISM
     Route: 048
  8. EVISTA [Concomitant]
     Indication: OSTEOPOROSIS
     Route: 048

REACTIONS (6)
  - DECREASED APPETITE [None]
  - ERYTHEMA [None]
  - LIVER DISORDER [None]
  - MALAISE [None]
  - PRURITUS GENERALISED [None]
  - PYREXIA [None]
